FAERS Safety Report 5389211-9 (Version None)
Quarter: 2007Q3

REPORT INFORMATION
  Report Type: 
  Country: None (occurrence: None)
  Receive Date: 20070717
  Receipt Date: 20070716
  Transmission Date: 20080115
  Serious: Yes (Hospitalization)
  Sender: FDA-Public Use
  Company Number: ES-BRISTOL-MYERS SQUIBB COMPANY-13846217

PATIENT
  Age: 47 Year
  Sex: Female

DRUGS (5)
  1. TAXOL [Suspect]
     Indication: BREAST CANCER
     Route: 042
     Dates: start: 20061101, end: 20070401
  2. CYCLOPHOSPHAMIDE [Suspect]
     Indication: BREAST CANCER
     Route: 042
     Dates: start: 20061101, end: 20070401
  3. MYOCET [Suspect]
     Indication: BREAST CANCER
     Route: 042
     Dates: start: 20061101, end: 20070401
  4. OMEPRAZOLE [Concomitant]
     Indication: PROPHYLAXIS
     Route: 048
  5. SINTROM [Concomitant]
     Indication: PROPHYLAXIS
     Route: 048

REACTIONS (3)
  - BRONCHIAL HYPERREACTIVITY [None]
  - BRONCHOSPASM [None]
  - EMPHYSEMA [None]
